FAERS Safety Report 16597378 (Version 1)
Quarter: 2019Q3

REPORT INFORMATION
  Report Type: Spontaneous
  Country: US (occurrence: US)
  Receive Date: 20190719
  Receipt Date: 20190719
  Transmission Date: 20191004
  Serious: Yes (Other)
  Sender: FDA-Public Use
  Company Number: US-PFIZER INC-2019303506

PATIENT
  Age: 35 Year
  Sex: Female
  Weight: 63.49 kg

DRUGS (5)
  1. OXYCODONE HYDROCHLORIDE/PARACETAMOL [Concomitant]
     Dosage: 5 MG, 3X/DAY
  2. MORPHINE SULFATE. [Concomitant]
     Active Substance: MORPHINE SULFATE
     Dosage: 15 MG, 2X/DAY
  3. LYRICA [Suspect]
     Active Substance: PREGABALIN
     Indication: AUTOIMMUNE DISORDER
  4. LYRICA [Suspect]
     Active Substance: PREGABALIN
     Indication: FIBROMYALGIA
     Dosage: UNK
     Dates: start: 201401
  5. LYRICA [Suspect]
     Active Substance: PREGABALIN
     Indication: CONDITION AGGRAVATED

REACTIONS (5)
  - Drug dependence [Unknown]
  - Asthenia [Unknown]
  - Alopecia [Recovered/Resolved]
  - Weight fluctuation [Unknown]
  - Malaise [Unknown]
